FAERS Safety Report 7402701-X (Version None)
Quarter: 2011Q2

REPORT INFORMATION
  Report Type: 
  Country: None (occurrence: None)
  Receive Date: 20110408
  Receipt Date: 20110328
  Transmission Date: 20111010
  Serious: Yes (Hospitalization)
  Sender: FDA-Public Use
  Company Number: AR-ROCHE-711069

PATIENT
  Sex: Female

DRUGS (3)
  1. MEPREDNISONE [Suspect]
     Route: 065
     Dates: start: 20070318
  2. MYCOPHENOLATE MOFETIL [Suspect]
     Route: 048
     Dates: start: 20070316
  3. BELATACEPT [Suspect]
     Route: 042
     Dates: start: 20070316

REACTIONS (4)
  - VAGINAL HAEMORRHAGE [None]
  - UROSEPSIS [None]
  - HEPATIC FAILURE [None]
  - RESPIRATORY DISTRESS [None]
